FAERS Safety Report 21591563 (Version 2)
Quarter: 2022Q4

REPORT INFORMATION
  Report Type: Spontaneous
  Country: FR (occurrence: FR)
  Receive Date: 20221114
  Receipt Date: 20221219
  Transmission Date: 20230112
  Serious: Yes (Other)
  Sender: FDA-Public Use
  Company Number: None

PATIENT
  Age: 43 Year
  Sex: Female
  Weight: 66 kg

DRUGS (4)
  1. DEXTROSE [Suspect]
     Active Substance: DEXTROSE
     Indication: Hypokalaemia
     Dosage: 1 FLACON DE 1000ML DE GLUCOSE 5% PAR JOUR./1 BOTTLE OF 1000ML OF 5% GLUCOSE PER DAY.
     Route: 042
     Dates: start: 20220826, end: 20220901
  2. DEXTROSE [Suspect]
     Active Substance: DEXTROSE
     Dosage: 1 FLACON DE 1000ML DE GLUCOSE 5% PAR JOUR / 1 BOTTLE OF 1000ML OF 5% GLUCOSE PER DAY.
     Route: 042
     Dates: start: 20220826, end: 20220830
  3. POTASSIUM CHLORIDE [Suspect]
     Active Substance: POTASSIUM CHLORIDE
     Indication: Hypokalaemia
     Dosage: 4 AMPOULES DE 10ML ? 10% DE KCL, PAR JOUR./4 AMPOULES OF 10ML AT 10 E KCL, PER DAY.
     Route: 042
     Dates: start: 20220826, end: 20220830
  4. POTASSIUM CHLORIDE [Suspect]
     Active Substance: POTASSIUM CHLORIDE
     Dosage: 4 AMPOULES DE 10ML ? 10% DE KCL, PAR JOUR./4 AMPOULES OF 10ML AT 10 E KCL, PER DAY.
     Route: 042
     Dates: start: 20220826, end: 20220901

REACTIONS (5)
  - Infusion site vesicles [Recovering/Resolving]
  - Infusion site vesicles [Recovering/Resolving]
  - Infusion site ulcer [Not Recovered/Not Resolved]
  - Infusion site extravasation [Recovered/Resolved]
  - Infusion site extravasation [Recovered/Resolved]

NARRATIVE: CASE EVENT DATE: 20220830
